FAERS Safety Report 5036721-X (Version None)
Quarter: 2006Q2

REPORT INFORMATION
  Report Type: 
  Country: None (occurrence: None)
  Receive Date: 20060613
  Receipt Date: 20060516
  Transmission Date: 20061013
  Serious: Yes (Other)
  Sender: FDA-Public Use
  Company Number: US-JNJFOC-20060503675

PATIENT
  Age: 28 Year
  Sex: Female
  Weight: 67.586 kg

DRUGS (6)
  1. ORTHO EVRA [Suspect]
     Indication: CONTRACEPTION
     Dosage: TRANSDERMAL
     Route: 062
     Dates: start: 20030101, end: 20050101
  2. ORTHO EVRA [Suspect]
     Indication: DRUG USE FOR UNKNOWN INDICATION
     Dosage: TRANSDERMAL
     Route: 062
     Dates: start: 20030101, end: 20050101
  3. ORTHO EVRA [Suspect]
     Indication: CONTRACEPTION
     Dosage: TRANSDERMAL
     Route: 062
     Dates: start: 20060507, end: 20060509
  4. ORTHO EVRA [Suspect]
     Indication: DRUG USE FOR UNKNOWN INDICATION
     Dosage: TRANSDERMAL
     Route: 062
     Dates: start: 20060507, end: 20060509
  5. IRON SUPPLEMENTS (IRON) [Concomitant]
  6. JUICE PLUS (ALL OTHER NON-THERAPEUTIC PRODUCTS) [Concomitant]

REACTIONS (1)
  - CEREBROVASCULAR ACCIDENT [None]
